FAERS Safety Report 10866370 (Version 1)
Quarter: 2015Q1

REPORT INFORMATION
  Report Type: Spontaneous
  Country: US (occurrence: None)
  Receive Date: 20150219
  Receipt Date: 20150219
  Transmission Date: 20150721
  Serious: No
  Sender: FDA-Public Use
  Company Number: None

PATIENT
  Age: 2 Month
  Sex: Female

DRUGS (1)
  1. METRONIDAZOLE CREAM (METRONIDAZOLE CREAM) 10MG [Suspect]
     Active Substance: METRONIDAZOLE

REACTIONS (2)
  - Exposure during pregnancy [None]
  - Eczema [None]
